FAERS Safety Report 15894620 (Version 1)
Quarter: 2019Q1

REPORT INFORMATION
  Report Type: Report from Study
  Country: US (occurrence: US)
  Receive Date: 20190131
  Receipt Date: 20190131
  Transmission Date: 20190417
  Serious: Yes (Hospitalization, Other)
  Sender: FDA-Public Use
  Company Number: US-ROCHE-1682585

PATIENT
  Age: 66 Year
  Sex: Male

DRUGS (1)
  1. ALTEPLASE. [Suspect]
     Active Substance: ALTEPLASE
     Indication: CEREBROVASCULAR ACCIDENT
     Dosage: INTRAVENTRICULAR CATHETER

REACTIONS (6)
  - Urinary tract infection [Recovered/Resolved]
  - Mental status changes [Unknown]
  - Seizure [Unknown]
  - Encephalopathy [Unknown]
  - Respiratory failure [Recovered/Resolved]
  - Upper respiratory tract infection [Recovered/Resolved]

NARRATIVE: CASE EVENT DATE: 20150620
